FAERS Safety Report 11079417 (Version 1)
Quarter: 2015Q2

REPORT INFORMATION
  Report Type: Spontaneous
  Country: HU (occurrence: None)
  Receive Date: 20150428
  Receipt Date: 20150428
  Transmission Date: 20150821
  Serious: Yes (Hospitalization, Other)
  Sender: FDA-Public Use
  Company Number: HU-2013VAL000624

PATIENT
  Age: 62 Year
  Sex: Female

DRUGS (2)
  1. AMIODARONE [Suspect]
     Active Substance: AMIODARONE
     Indication: ARRHYTHMIA
  2. METOPROLOL TARTRATE. [Suspect]
     Active Substance: METOPROLOL TARTRATE
     Indication: ARRHYTHMIA

REACTIONS (6)
  - Ischaemic stroke [None]
  - Drug ineffective [None]
  - Ventricular fibrillation [None]
  - Septic shock [None]
  - Arrhythmia [None]
  - Product quality issue [None]
